FAERS Safety Report 5911509-3 (Version None)
Quarter: 2008Q4

REPORT INFORMATION
  Report Type: 
  Country: None (occurrence: None)
  Receive Date: 20081007
  Receipt Date: 20080922
  Transmission Date: 20090506
  Serious: Yes (Other)
  Sender: FDA-Public Use
  Company Number: US-GENENTECH-269252

PATIENT
  Age: 65 Year
  Sex: Female

DRUGS (9)
  1. MABTHERA [Suspect]
     Indication: EPSTEIN-BARR VIRUS ASSOCIATED LYMPHOPROLIFERATIVE DISORDER
     Dosage: 325 MG, UNK
     Route: 042
  2. MYCOPHENOLATE MOFETIL [Suspect]
     Indication: PROPHYLAXIS
     Dosage: 1 G, BID
     Route: 065
  3. VALGANCICLOVIR HCL [Suspect]
     Indication: PROPHYLAXIS
     Dosage: 450 MG, UNK
     Route: 065
  4. THYMOGLOBULIN [Suspect]
     Indication: IMMUNOSUPPRESSION
     Route: 065
  5. PREDNISONE TAB [Suspect]
     Indication: PROPHYLAXIS
     Dosage: 30 MG, UNK
     Route: 065
  6. CYCLOSPORINE [Suspect]
     Indication: PROPHYLAXIS
     Dosage: 2 UNK, BID
     Route: 065
  7. SIROLIMUS [Concomitant]
     Indication: EPSTEIN-BARR VIRUS ASSOCIATED LYMPHOPROLIFERATIVE DISORDER
  8. ACYCLOVIR SODIUM [Concomitant]
     Indication: DRUG USE FOR UNKNOWN INDICATION
  9. ANTIHYPERTENSIVE NOS [Concomitant]
     Indication: HYPERTENSION

REACTIONS (1)
  - TRANSPLANT REJECTION [None]
